FAERS Safety Report 9904547 (Version 1)
Quarter: 2014Q1

REPORT INFORMATION
  Report Type: Spontaneous
  Country: AU (occurrence: AU)
  Receive Date: 20140218
  Receipt Date: 20140218
  Transmission Date: 20141002
  Serious: Yes (Hospitalization)
  Sender: FDA-Public Use
  Company Number: AU-NOVOPROD-399956

PATIENT
  Age: 65 Year
  Sex: Male

DRUGS (1)
  1. MIXTARD 30/70 [Suspect]
     Indication: TYPE 1 DIABETES MELLITUS
     Dosage: 62 U QD, (46 UNITS MORNING, 16 UNITS NIGHT)
     Route: 065

REACTIONS (2)
  - Hip fracture [Not Recovered/Not Resolved]
  - Hypoglycaemia [Not Recovered/Not Resolved]
